FAERS Safety Report 8856240 (Version 1)
Quarter: 2012Q4

REPORT INFORMATION
  Report Type: Spontaneous
  Country: NZ (occurrence: None)
  Receive Date: 20121019
  Receipt Date: 20121019
  Transmission Date: 20130627
  Serious: Yes (Other)
  Sender: FDA-Public Use
  Company Number: NZ-INDICUS PHARMA-000035

PATIENT
  Age: 76 Year
  Sex: Female

DRUGS (3)
  1. DONEPEZIL (DONEPEZIL) [Suspect]
     Indication: DRUG USE FOR UNKNOWN INDICATION
  2. CITALOPRAM (CITALOPRAM) [Suspect]
     Indication: DRUG USE FOR UNKNOWN INDICATION
  3. METOPROLOL (METOPROLOL) [Concomitant]

REACTIONS (1)
  - Bipolar disorder [None]
